FAERS Safety Report 17948358 (Version 5)
Quarter: 2020Q4

REPORT INFORMATION
  Report Type: Spontaneous
  Country: CA (occurrence: CA)
  Receive Date: 20200625
  Receipt Date: 20201009
  Transmission Date: 20210113
  Serious: Yes (Hospitalization, Other)
  Sender: FDA-Public Use
  Company Number: CA-HRARD-202000495

PATIENT
  Age: 37 Year
  Sex: Female

DRUGS (3)
  1. CORTEF [Concomitant]
     Active Substance: HYDROCORTISONE
     Indication: ADRENAL INSUFFICIENCY
     Dosage: 20MG /10MG
     Route: 048
     Dates: start: 201912, end: 20200608
  2. LYSODREN [Suspect]
     Active Substance: MITOTANE
     Indication: ADRENAL GLAND CANCER
     Dosage: 1G IN THE MORNING, 1G AT LUNCH,  1.5G AT SUPPER AND 1.5G AT BEDTIME
     Dates: start: 20200221, end: 20200608
  3. CORTEF [Concomitant]
     Active Substance: HYDROCORTISONE
     Indication: ADRENAL INSUFFICIENCY
     Dosage: 20MG /10MG / 10MG
     Route: 048
     Dates: start: 20200608

REACTIONS (5)
  - Septic shock [Recovered/Resolved]
  - Renal failure [Recovered/Resolved]
  - Urinary tract infection [Recovered/Resolved]
  - Hepatic enzyme increased [Recovered/Resolved]
  - Coma [Recovered/Resolved]

NARRATIVE: CASE EVENT DATE: 20200520
